FAERS Safety Report 8292307-5 (Version None)
Quarter: 2012Q2

REPORT INFORMATION
  Report Type: 
  Country: None (occurrence: None)
  Receive Date: 20120417
  Receipt Date: 20120411
  Transmission Date: 20120825
  Serious: Yes (Life-Threatening, Other)
  Sender: FDA-Public Use
  Company Number: US-ELI_LILLY_AND_COMPANY-US201107004541

PATIENT
  Sex: Male

DRUGS (11)
  1. JANUVIA [Concomitant]
  2. LASIX [Concomitant]
     Dosage: 40 DF, QD
  3. BYETTA [Suspect]
     Dosage: UNK
     Dates: start: 20080101, end: 20100329
  4. KETOCONAZOLE [Concomitant]
  5. CRESTOR [Concomitant]
  6. COUMADIN [Concomitant]
  7. DIOVAN [Concomitant]
  8. KLOR-CON [Concomitant]
  9. TERBINAFINE HCL [Concomitant]
  10. LANTUS [Concomitant]
  11. TRILIPIX [Concomitant]

REACTIONS (3)
  - RENAL FAILURE ACUTE [None]
  - RESPIRATORY FAILURE [None]
  - RENAL FAILURE [None]
